FAERS Safety Report 24613063 (Version 1)
Quarter: 2024Q4

REPORT INFORMATION
  Report Type: Spontaneous
  Country: US (occurrence: None)
  Receive Date: 20241112
  Receipt Date: 20241112
  Transmission Date: 20250115
  Serious: Yes (Hospitalization)
  Sender: Public
  Company Number: None

PATIENT
  Age: 51 Year
  Sex: Male
  Weight: 155.25 kg

DRUGS (1)
  1. CEFAZOLIN [Suspect]
     Active Substance: CEFAZOLIN
     Indication: Preoperative care
     Dates: start: 20241030, end: 20241030

REACTIONS (6)
  - Infusion related reaction [None]
  - Hyperhidrosis [None]
  - Blood pressure systolic decreased [None]
  - Dyspnoea [None]
  - Rash pruritic [None]
  - Syncope [None]

NARRATIVE: CASE EVENT DATE: 20241030
